FAERS Safety Report 9459585 (Version 1)
Quarter: 2013Q3

REPORT INFORMATION
  Report Type: Spontaneous
  Country: US (occurrence: US)
  Receive Date: 20130815
  Receipt Date: 20130815
  Transmission Date: 20140515
  Serious: Yes (Other)
  Sender: FDA-Public Use
  Company Number: US-BAYER-2013-094170

PATIENT
  Sex: 0

DRUGS (1)
  1. STIVARGA [Suspect]
     Dosage: UNK
     Dates: end: 201308

REACTIONS (3)
  - Hepatitis [None]
  - Palmar-plantar erythrodysaesthesia syndrome [None]
  - Colitis [None]
